FAERS Safety Report 6208635-0 (Version None)
Quarter: 2009Q2

REPORT INFORMATION
  Report Type: 
  Country: None (occurrence: None)
  Receive Date: 20090529
  Receipt Date: 20090108
  Transmission Date: 20091009
  Serious: Yes (Hospitalization)
  Sender: FDA-Public Use
  Company Number: JP-JNJFOC-20090102519

PATIENT

DRUGS (5)
  1. TARIVID [Suspect]
     Indication: DIARRHOEA
     Route: 048
  2. CRAVIT [Concomitant]
     Indication: DRUG USE FOR UNKNOWN INDICATION
     Route: 048
  3. LOPEMIN [Concomitant]
     Route: 065
  4. LAC-B [Concomitant]
     Route: 065
  5. TANNALBIN [Concomitant]
     Route: 065

REACTIONS (3)
  - DRUG INEFFECTIVE [None]
  - HAEMATEMESIS [None]
  - PSEUDOMEMBRANOUS COLITIS [None]
